FAERS Safety Report 9072918 (Version 1)
Quarter: 2013Q1

REPORT INFORMATION
  Report Type: Report from Study
  Country: US (occurrence: US)
  Receive Date: 20130129
  Receipt Date: 20130129
  Transmission Date: 20140127
  Serious: No
  Sender: FDA-Public Use
  Company Number: US-ABBOTT-12P-163-0933798-00

PATIENT
  Sex: Female

DRUGS (1)
  1. HUMIRA 40 MG/0.8 ML PEN [Suspect]
     Indication: PSORIASIS
     Dates: start: 201204, end: 20120408

REACTIONS (8)
  - Nausea [Unknown]
  - Alopecia [Unknown]
  - Pruritus generalised [Unknown]
  - Chromaturia [Unknown]
  - Dizziness [Unknown]
  - Dizziness [Unknown]
  - Arthralgia [Unknown]
  - Hypoaesthesia [Unknown]
